FAERS Safety Report 13587574 (Version 1)
Quarter: 2017Q2

REPORT INFORMATION
  Report Type: Spontaneous
  Country: US (occurrence: US)
  Receive Date: 20170526
  Receipt Date: 20170526
  Transmission Date: 20170830
  Serious: No
  Sender: FDA-Public Use
  Company Number: None

PATIENT
  Age: 33 Year
  Sex: Female

DRUGS (1)
  1. STELARA [Suspect]
     Active Substance: USTEKINUMAB

REACTIONS (4)
  - Arthralgia [None]
  - Pain in extremity [None]
  - Gait disturbance [None]
  - Musculoskeletal stiffness [None]

NARRATIVE: CASE EVENT DATE: 20170223
